FAERS Safety Report 12904718 (Version 1)
Quarter: 2016Q4

REPORT INFORMATION
  Report Type: Spontaneous
  Country: US (occurrence: US)
  Receive Date: 20161102
  Receipt Date: 20161102
  Transmission Date: 20170207
  Serious: Yes (Other)
  Sender: FDA-Public Use
  Company Number: US-ALLERGAN-1674315US

PATIENT
  Age: 50 Year
  Sex: Female

DRUGS (1)
  1. BOTOX [Suspect]
     Active Substance: ONABOTULINUMTOXINA
     Indication: MIGRAINE
     Dosage: UNK, SINGLE
     Route: 058
     Dates: start: 201606, end: 201606

REACTIONS (7)
  - Throat tightness [Recovered/Resolved]
  - Off label use [Unknown]
  - Speech disorder [Recovered/Resolved]
  - Incorrect route of drug administration [Unknown]
  - Swelling [Recovered/Resolved]
  - Dysphagia [Recovered/Resolved]
  - Facial paralysis [Recovered/Resolved]

NARRATIVE: CASE EVENT DATE: 201606
